FAERS Safety Report 20003857 (Version 2)
Quarter: 2021Q4

REPORT INFORMATION
  Report Type: Spontaneous
  Country: BR (occurrence: BR)
  Receive Date: 20211027
  Receipt Date: 20211207
  Transmission Date: 20220303
  Serious: Yes (Death, Hospitalization)
  Sender: FDA-Public Use
  Company Number: BR-HORIZON THERAPEUTICS-HZN-2021-008278

PATIENT

DRUGS (1)
  1. PROCYSBI [Interacting]
     Active Substance: CYSTEAMINE BITARTRATE
     Indication: Cystinosis
     Dosage: 7 CAPSULES OF 75MG IN THE MORNING AND 7 CAPSULES OF 75MG IN THE END OF THE DAY ? TOTAL OF 1050MG/DA
     Route: 065
     Dates: start: 20151006

REACTIONS (1)
  - COVID-19 [Fatal]

NARRATIVE: CASE EVENT DATE: 20210906
